FAERS Safety Report 15232141 (Version 2)
Quarter: 2018Q4

REPORT INFORMATION
  Report Type: Spontaneous
  Country: SA (occurrence: SA)
  Receive Date: 20180802
  Receipt Date: 20181130
  Transmission Date: 20190204
  Serious: Yes (Hospitalization)
  Sender: FDA-Public Use
  Company Number: SA-JNJFOC-20180735538

PATIENT
  Age: 78 Year
  Sex: Female
  Weight: 80 kg

DRUGS (9)
  1. XARELTO [Suspect]
     Active Substance: RIVAROXABAN
     Indication: PRODUCT USED FOR UNKNOWN INDICATION
     Route: 048
     Dates: end: 20180120
  2. FRUSEMIDE [Concomitant]
     Active Substance: FUROSEMIDE
     Route: 065
     Dates: start: 20170525, end: 20170526
  3. THYROXINE [Concomitant]
     Active Substance: LEVOTHYROXINE
     Route: 065
     Dates: start: 20170124, end: 20170525
  4. CANDESARTAN. [Concomitant]
     Active Substance: CANDESARTAN
     Route: 065
     Dates: start: 20170214
  5. CEFTRIAXONE. [Concomitant]
     Active Substance: CEFTRIAXONE
     Route: 042
  6. XARELTO [Suspect]
     Active Substance: RIVAROXABAN
     Indication: PRODUCT USED FOR UNKNOWN INDICATION
     Route: 048
     Dates: start: 20180121
  7. CANDESARTAN. [Concomitant]
     Active Substance: CANDESARTAN
     Route: 065
     Dates: start: 20160925
  8. THYROXINE [Concomitant]
     Active Substance: LEVOTHYROXINE
     Route: 065
     Dates: start: 20170223
  9. SILDENAFIL. [Concomitant]
     Active Substance: SILDENAFIL
     Route: 065
     Dates: start: 20161129, end: 20170402

REACTIONS (1)
  - Cardiac failure [Recovered/Resolved]

NARRATIVE: CASE EVENT DATE: 20170520
